FAERS Safety Report 8382447-4 (Version None)
Quarter: 2012Q2

REPORT INFORMATION
  Report Type: 
  Country: None (occurrence: None)
  Receive Date: 20120524
  Receipt Date: 20120521
  Transmission Date: 20120825
  Serious: Yes (Other)
  Sender: FDA-Public Use
  Company Number: PHEH2012US010477

PATIENT
  Sex: Female

DRUGS (7)
  1. ASPIRIN [Concomitant]
  2. SIMVASTATIN [Concomitant]
  3. ATENOLOL [Concomitant]
  4. CALCIUM CARBONATE [Concomitant]
  5. CALCIUM [Concomitant]
  6. VITAMIN D [Concomitant]
  7. MIACALCIN [Suspect]

REACTIONS (2)
  - OSTEOPOROSIS [None]
  - VITAMIN D DECREASED [None]
